APPROVED DRUG PRODUCT: WIDAPLIK
Active Ingredient: AMLODIPINE BESYLATE; INDAPAMIDE; TELMISARTAN
Strength: EQ 1.25MG BASE;0.625MG;10MG
Dosage Form/Route: TABLET;ORAL
Application: N219423 | Product #001
Applicant: AZURITY PHARMACEUTICALS INC
Approved: Jun 5, 2025 | RLD: Yes | RS: No | Type: DISCN

PATENTS:
Patent 10322117 | Expires: Jan 23, 2038
Patent 12465599 | Expires: Jan 23, 2038

EXCLUSIVITY:
Code: NP | Date: Jun 5, 2028